FAERS Safety Report 21017467 (Version 1)
Quarter: 2022Q2

REPORT INFORMATION
  Report Type: Spontaneous
  Country: US (occurrence: US)
  Receive Date: 20220628
  Receipt Date: 20220628
  Transmission Date: 20220721
  Serious: Yes (Other)
  Sender: FDA-Public Use
  Company Number: US-AMGEN-USASP2022108076

PATIENT
  Age: 16 Year
  Sex: Female

DRUGS (9)
  1. XGEVA [Suspect]
     Active Substance: DENOSUMAB
     Indication: Osteosarcoma metastatic
     Dosage: UNK
     Route: 065
  2. BEVACIZUMAB [Suspect]
     Active Substance: BEVACIZUMAB
     Indication: Osteosarcoma metastatic
     Dosage: UNK
     Route: 065
  3. CISPLATIN [Concomitant]
     Active Substance: CISPLATIN
  4. DOXORUBICIN [Concomitant]
     Active Substance: DOXORUBICIN
  5. IFOSFAMIDE [Concomitant]
     Active Substance: IFOSFAMIDE
  6. ETOPOSIDE [Concomitant]
     Active Substance: ETOPOSIDE
  7. GEMCITABINE [Concomitant]
     Active Substance: GEMCITABINE
  8. DOCETAXEL [Concomitant]
     Active Substance: DOCETAXEL
  9. ZOLEDRONIC ACID [Concomitant]
     Active Substance: ZOLEDRONIC ACID

REACTIONS (2)
  - Osteosarcoma recurrent [Unknown]
  - Off label use [Unknown]
